FAERS Safety Report 4865861-0 (Version None)
Quarter: 2005Q4

REPORT INFORMATION
  Report Type: 
  Country: None (occurrence: None)
  Receive Date: 20051220
  Receipt Date: 20051208
  Transmission Date: 20060501
  Serious: Yes (Other)
  Sender: FDA-Public Use
  Company Number: 2005146509

PATIENT
  Sex: Female

DRUGS (2)
  1. DEPO-PROVERA [Suspect]
     Indication: CONTRACEPTION
     Dosage: 150 MG (150 MG, FIRST INJECTION/TRIMESTRAL); 150 MG (150 MG, MOST RECENT)
     Dates: start: 20050920, end: 20050920
  2. DEPO-PROVERA [Suspect]
     Indication: CONTRACEPTION
     Dosage: 150 MG (150 MG, FIRST INJECTION/TRIMESTRAL); 150 MG (150 MG, MOST RECENT)
     Dates: start: 20020101

REACTIONS (2)
  - APPLICATION SITE ABSCESS [None]
  - APPLICATION SITE INFLAMMATION [None]
